FAERS Safety Report 22822864 (Version 5)
Quarter: 2023Q4

REPORT INFORMATION
  Report Type: Report from Study
  Country: US (occurrence: US)
  Receive Date: 20230815
  Receipt Date: 20231211
  Transmission Date: 20240110
  Serious: No
  Sender: FDA-Public Use
  Company Number: US-002147023-NVSC2023US177202

PATIENT
  Sex: Female

DRUGS (1)
  1. KESIMPTA [Suspect]
     Active Substance: OFATUMUMAB
     Indication: Product used for unknown indication
     Dosage: 0.4 ML, QW
     Route: 030

REACTIONS (8)
  - Headache [Not Recovered/Not Resolved]
  - Fatigue [Unknown]
  - Device malfunction [Unknown]
  - Needle issue [Unknown]
  - Device leakage [Unknown]
  - Incorrect dose administered by device [Unknown]
  - Incorrect route of product administration [Unknown]
  - Device difficult to use [Unknown]
